FAERS Safety Report 10622004 (Version 1)
Quarter: 2014Q4

REPORT INFORMATION
  Report Type: Spontaneous
  Country: US (occurrence: None)
  Receive Date: 20141201
  Receipt Date: 20141201
  Transmission Date: 20150529
  Serious: Yes (Life-Threatening, Hospitalization)
  Sender: FDA-Public Use
  Company Number: None

PATIENT
  Age: 71 Year
  Sex: Female
  Weight: 83.46 kg

DRUGS (6)
  1. VICTOZA [Suspect]
     Active Substance: LIRAGLUTIDE
     Indication: DIABETES MELLITUS
     Dates: start: 20140226, end: 20141003
  2. LOW DOSE ASPIRIN [Concomitant]
     Active Substance: ASPIRIN
  3. OMEPRAZOLE. [Concomitant]
     Active Substance: OMEPRAZOLE
  4. GLIPISIZE ER [Concomitant]
  5. MELALEUCA VITAMIN [Concomitant]
  6. MINERAL SUPPLEMENTS [Concomitant]
     Active Substance: UNSPECIFIED INGREDIENT

REACTIONS (13)
  - Diarrhoea [None]
  - Chromaturia [None]
  - Pancreatitis [None]
  - Dizziness [None]
  - Blood potassium decreased [None]
  - Faeces discoloured [None]
  - Hepatic enzyme increased [None]
  - Dehydration [None]
  - Hypotension [None]
  - Vomiting [None]
  - Asthenia [None]
  - Decreased appetite [None]
  - Pruritus [None]

NARRATIVE: CASE EVENT DATE: 20140928
